FAERS Safety Report 5149645-4 (Version None)
Quarter: 2006Q4

REPORT INFORMATION
  Report Type: 
  Country: None (occurrence: None)
  Receive Date: 20061113
  Receipt Date: 20060705
  Transmission Date: 20070319
  Serious: No
  Sender: FDA-Public Use
  Company Number: US-GLAXOSMITHKLINE-A0611153A

PATIENT
  Age: 2 Week
  Sex: Female

DRUGS (2)
  1. COREG [Suspect]
     Indication: CARDIOMYOPATHY
     Dosage: 6.25MG TWICE PER DAY
     Dates: start: 19930101
  2. LANOXIN [Suspect]
     Indication: CARDIOMYOPATHY
     Dosage: .125MG PER DAY
     Dates: start: 19930101

REACTIONS (3)
  - ABDOMINAL PAIN [None]
  - CRYING [None]
  - DRUG EXPOSURE DURING PREGNANCY [None]
